FAERS Safety Report 10024495 (Version 1)
Quarter: 2014Q1

REPORT INFORMATION
  Report Type: Spontaneous
  Country: US (occurrence: None)
  Receive Date: 20140204
  Receipt Date: 20140204
  Transmission Date: 20141002
  Serious: Yes (Hospitalization)
  Sender: FDA-Public Use
  Company Number: 2014-013151

PATIENT
  Age: 62 Year
  Sex: Female

DRUGS (1)
  1. UP+UP HYDROGEN PEROXIDE [Suspect]

REACTIONS (3)
  - Cyst [None]
  - Exposure to mould [None]
  - Product contamination [None]
